FAERS Safety Report 6468799-0 (Version None)
Quarter: 2009Q4

REPORT INFORMATION
  Report Type: 
  Country: None (occurrence: None)
  Receive Date: 20091203
  Receipt Date: 20080225
  Transmission Date: 20100525
  Serious: Yes (Hospitalization, Other)
  Sender: FDA-Public Use
  Company Number: US-ELI_LILLY_AND_COMPANY-US_010870797

PATIENT
  Age: 12 Year
  Sex: Male

DRUGS (3)
  1. ZYPREXA [Suspect]
     Dosage: 205 MG, DAILY (1/D)
     Route: 048
  2. PAROXETINE [Concomitant]
     Dosage: 10 MG, EACH MORNING
  3. ADDERALL 10 [Concomitant]
     Dosage: 10 MG, 2/D

REACTIONS (14)
  - AGITATION [None]
  - ALTERED STATE OF CONSCIOUSNESS [None]
  - APHASIA [None]
  - COGNITIVE DISORDER [None]
  - DRUG LEVEL INCREASED [None]
  - DRUG TOXICITY [None]
  - HEART RATE INCREASED [None]
  - INTENTIONAL DRUG MISUSE [None]
  - INTENTIONAL OVERDOSE [None]
  - LETHARGY [None]
  - MIOSIS [None]
  - MYDRIASIS [None]
  - PUPILLARY REFLEX IMPAIRED [None]
  - SOMNOLENCE [None]
